FAERS Safety Report 6941118-9 (Version None)
Quarter: 2010Q3

REPORT INFORMATION
  Report Type: 
  Country: None (occurrence: None)
  Receive Date: 20100825
  Receipt Date: 20100513
  Transmission Date: 20110219
  Serious: No
  Sender: FDA-Public Use
  Company Number: US-BRISTOL-MYERS SQUIBB COMPANY-15083421

PATIENT
  Age: 43 Year
  Sex: Female

DRUGS (6)
  1. ONGLYZA [Suspect]
     Indication: DIABETES MELLITUS
     Route: 048
  2. CRESTOR [Suspect]
     Indication: HYPERLIPIDAEMIA
  3. METFORMIN HCL [Concomitant]
  4. PRAVASTATIN [Concomitant]
  5. LANTUS [Concomitant]
     Dosage: LANTUS INSULIN
  6. NOVOLIN 70/30 [Concomitant]
     Dosage: NOVOLIN INSULIN

REACTIONS (3)
  - OEDEMA PERIPHERAL [None]
  - PAIN IN EXTREMITY [None]
  - UPPER RESPIRATORY TRACT INFECTION [None]
